FAERS Safety Report 15056531 (Version 2)
Quarter: 2018Q2

REPORT INFORMATION
  Report Type: Spontaneous
  Country: US (occurrence: US)
  Receive Date: 20180623
  Receipt Date: 20180626
  Transmission Date: 20180711
  Serious: Yes (Other)
  Sender: FDA-Public Use
  Company Number: US-TORRENT-00006257

PATIENT
  Age: 26 Year
  Sex: Male
  Weight: 89 kg

DRUGS (3)
  1. HYDROCORTISONE ACETATE. [Suspect]
     Active Substance: HYDROCORTISONE ACETATE
     Indication: HAEMORRHOIDS
     Dosage: LOT NUMBER: 17L019, PRESCRIPTION NUMBER: 7741373
  2. ZOLOFT [Concomitant]
     Active Substance: SERTRALINE HYDROCHLORIDE
     Indication: MENTAL DISORDER
     Dosage: UNKNOWN
  3. INVEGA [Concomitant]
     Active Substance: PALIPERIDONE
     Indication: MENTAL DISORDER
     Dosage: UNKNOWN

REACTIONS (7)
  - Wrong technique in product usage process [Unknown]
  - Inflammation [Not Recovered/Not Resolved]
  - Pain [Not Recovered/Not Resolved]
  - Product quality issue [Unknown]
  - Product use issue [Unknown]
  - Haemorrhage [Recovered/Resolved]
  - Insomnia [Unknown]

NARRATIVE: CASE EVENT DATE: 20180608
